FAERS Safety Report 4566325-4 (Version None)
Quarter: 2005Q1

REPORT INFORMATION
  Report Type: 
  Country: None (occurrence: None)
  Receive Date: 20050128
  Receipt Date: 20050119
  Transmission Date: 20050727
  Serious: Yes (Death, Hospitalization)
  Sender: FDA-Public Use
  Company Number: SEWYE354019JAN05

PATIENT
  Age: 79 Year
  Sex: Female

DRUGS (11)
  1. TAZOCIN (PIPERACILLIN/TAZOBACTAM, INJECTION) [Suspect]
     Indication: PNEUMONIA
     Dosage: 4 G 3XPER 1 DAY, PARENTERAL
     Route: 051
     Dates: start: 20041210, end: 20041214
  2. ALBYL-E (ACETYLSALICYLIC ACID/MAGNESIUM OXIDE) [Concomitant]
  3. ISOPTIN [Concomitant]
  4. KAJOS (POTASSIUM CITRATE) [Concomitant]
  5. NEXIUM [Concomitant]
  6. COZAAR [Concomitant]
  7. DIURAL (FUROSEMIDE) [Concomitant]
  8. SORBANGIL (ISOSORBIDE DINITRATE) [Concomitant]
  9. DIGITOXIN TAB [Concomitant]
  10. BENSYLPENICILLIN (BENZYLPENICILLIN) [Concomitant]
  11. SOLU-CORTEF [Concomitant]

REACTIONS (8)
  - ASTHENIA [None]
  - BLOOD PRESSURE DECREASED [None]
  - GUILLAIN-BARRE SYNDROME [None]
  - METABOLIC ACIDOSIS [None]
  - OXYGEN SATURATION DECREASED [None]
  - RENAL FAILURE [None]
  - RESPIRATORY ACIDOSIS [None]
  - THROMBOCYTOPENIA [None]
